FAERS Safety Report 14591322 (Version 1)
Quarter: 2018Q1

REPORT INFORMATION
  Report Type: Report from Study
  Country: FR (occurrence: FR)
  Receive Date: 20180302
  Receipt Date: 20180302
  Transmission Date: 20180509
  Serious: Yes (Death, Other)
  Sender: FDA-Public Use
  Company Number: FR-B.I. PHARMACEUTICALS,INC./RIDGEFIELD-2018-BI-011362

PATIENT
  Age: 81 Year
  Sex: Male
  Weight: 61 kg

DRUGS (1)
  1. PRAXBIND [Suspect]
     Active Substance: IDARUCIZUMAB
     Indication: LAPAROTOMY
     Route: 065

REACTIONS (1)
  - Multiple organ dysfunction syndrome [Fatal]
